FAERS Safety Report 6587936 (Version 34)
Quarter: 2013Q4

REPORT INFORMATION
  Report Type: Spontaneous
  Country: US (occurrence: US)
  Receive Date: 20080319
  Receipt Date: 20131106
  Transmission Date: 20140711
  Serious: Yes (Other)
  Sender: FDA-Public Use
  Company Number: PHEH2008US02770

PATIENT
  Age: 44 Year
  Sex: Male
  Weight: 198 kg

DRUGS (34)
  1. ZOMETA [Suspect]
     Indication: BONE LOSS
     Dates: start: 20050107, end: 200707
  2. NORVASC                                 /DEN/ [Concomitant]
  3. VYTORIN [Concomitant]
  4. ACCUPRIL [Concomitant]
  5. CHEMOTHERAPEUTICS NOS [Concomitant]
     Dates: end: 200504
  6. RADIATION THERAPY [Concomitant]
  7. DECADRAN [Concomitant]
     Dosage: 4 MG, TID
     Route: 048
     Dates: start: 20010828
  8. ZOSYN [Concomitant]
  9. PERIDEX [Concomitant]
  10. DIFLUCAN [Concomitant]
  11. LEVAQUIN [Concomitant]
  12. NEULASTA [Concomitant]
  13. RITUXAN [Concomitant]
  14. METHYLPREDNISOLONE [Concomitant]
  15. SKELAXIN [Concomitant]
  16. CYCLOBENZAPRINE [Concomitant]
  17. OXYCODONE [Concomitant]
  18. DEXAMETHASONE [Concomitant]
  19. ALOXI [Concomitant]
     Dosage: .25 MG,
  20. ADRIAMYCINE + VINCRISTINE [Concomitant]
     Dosage: 102 MG,
  21. VANCOMYCIN [Concomitant]
     Dosage: 1 G,
  22. LORCET [Concomitant]
  23. HYDROCODONE [Concomitant]
  24. AUGMENTIN                               /SCH/ [Concomitant]
  25. ZOCOR ^DIECKMANN^ [Concomitant]
  26. AMOXICILLIN [Concomitant]
  27. METFORMIN [Concomitant]
  28. TYLENOL [Concomitant]
  29. MULTIVITAMINS [Concomitant]
  30. VITAMIN C [Concomitant]
  31. VITAMIN B12 [Concomitant]
  32. MELATONIN [Concomitant]
  33. SENOKOT                                 /USA/ [Concomitant]
  34. LORTAB [Concomitant]

REACTIONS (98)
  - Graft versus host disease [Unknown]
  - B-cell lymphoma recurrent [Recovering/Resolving]
  - Abdominal neoplasm [Unknown]
  - Osteonecrosis of jaw [Recovering/Resolving]
  - Osteomyelitis [Unknown]
  - Injury [Unknown]
  - Pain [Unknown]
  - Anxiety [Unknown]
  - Lichen planus [Unknown]
  - Mouth ulceration [Unknown]
  - Tooth infection [Unknown]
  - Leukoplakia oral [Unknown]
  - Bone disorder [Unknown]
  - Cellulitis [Unknown]
  - Bone pain [Recovering/Resolving]
  - Cystitis [Unknown]
  - Bone lesion [Unknown]
  - Leukocytosis [Unknown]
  - Diarrhoea [Unknown]
  - Thrombocytopenia [Unknown]
  - Anaemia [Unknown]
  - White blood cell count decreased [Unknown]
  - Tongue discolouration [Unknown]
  - Sinus disorder [Unknown]
  - Oral herpes [Unknown]
  - Nephrolithiasis [Unknown]
  - Back pain [Recovering/Resolving]
  - Pain in extremity [Unknown]
  - Denture wearer [Unknown]
  - Swelling face [Unknown]
  - Fatigue [Unknown]
  - Gingival ulceration [Unknown]
  - Tooth fracture [Unknown]
  - Mucosal inflammation [Unknown]
  - Infection [Unknown]
  - Sinusitis [Unknown]
  - Pericardial cyst [Unknown]
  - Thyroid adenoma [Unknown]
  - Thyroid cyst [Unknown]
  - Blood potassium decreased [Unknown]
  - Nasal congestion [Unknown]
  - Pruritus [Unknown]
  - Erythema [Unknown]
  - Red man syndrome [Unknown]
  - Skin burning sensation [Unknown]
  - Pyrexia [Unknown]
  - Grimacing [Unknown]
  - Blood chloride increased [Unknown]
  - Blood creatinine increased [Unknown]
  - Blood calcium decreased [Unknown]
  - Platelet count decreased [Unknown]
  - Syncope [Unknown]
  - Hypokalaemia [Unknown]
  - Hypomagnesaemia [Unknown]
  - Angina pectoris [Unknown]
  - Left ventricular dysfunction [Unknown]
  - Tricuspid valve incompetence [Unknown]
  - Confusional state [Unknown]
  - Vision blurred [Unknown]
  - Paraesthesia [Unknown]
  - Dizziness [Unknown]
  - Altered state of consciousness [Unknown]
  - Metastatic neoplasm [Unknown]
  - Metastatic lymphoma [Unknown]
  - Poor venous access [Unknown]
  - Fall [Unknown]
  - Urinary incontinence [Unknown]
  - Head injury [Unknown]
  - Endocrine pancreatic disorder [Unknown]
  - Fungal infection [Unknown]
  - Concussion [Unknown]
  - Contusion [Unknown]
  - Lacrimal disorder [Unknown]
  - Hypertrophy [Unknown]
  - Metastases to bone [Unknown]
  - Metastases to bone marrow [Unknown]
  - Arteriosclerosis [Unknown]
  - Nephrocalcinosis [Unknown]
  - Oedema peripheral [Unknown]
  - Rhinitis allergic [Unknown]
  - Hyperlipidaemia [Unknown]
  - Diverticulum intestinal [Unknown]
  - Arthritis [Unknown]
  - Abdominal lymphadenopathy [Unknown]
  - Oral disorder [Unknown]
  - Hypertension [Unknown]
  - Depression [Recovering/Resolving]
  - Herpes zoster [Unknown]
  - Rib fracture [Unknown]
  - Essential hypertension [Unknown]
  - Marrow hyperplasia [Unknown]
  - Sinus tachycardia [Unknown]
  - Bundle branch block right [Unknown]
  - Oral pain [Unknown]
  - Urinary tract infection [Unknown]
  - Pain in jaw [Unknown]
  - Influenza like illness [Unknown]
  - Fistula [Unknown]
